FAERS Safety Report 22069452 (Version 1)
Quarter: 2023Q1

REPORT INFORMATION
  Report Type: Spontaneous
  Country: US (occurrence: US)
  Receive Date: 20230307
  Receipt Date: 20230307
  Transmission Date: 20230418
  Serious: No
  Sender: FDA-Public Use
  Company Number: US-AMNEAL PHARMACEUTICALS-2022-AMRX-00262

PATIENT
  Sex: Male

DRUGS (1)
  1. RYTARY [Suspect]
     Active Substance: CARBIDOPA\LEVODOPA
     Indication: Product used for unknown indication
     Dosage: 1 CAPSULES, 4X/DAY
     Route: 048

REACTIONS (5)
  - Oral pain [Unknown]
  - Blister [Unknown]
  - Mouth swelling [Unknown]
  - Swollen tongue [Unknown]
  - Hypersensitivity [Unknown]
